FAERS Safety Report 13586546 (Version 2)
Quarter: 2017Q2

REPORT INFORMATION
  Report Type: Report from Study
  Country: US (occurrence: US)
  Receive Date: 20170526
  Receipt Date: 20170626
  Transmission Date: 20170830
  Serious: Yes (Death)
  Sender: FDA-Public Use
  Company Number: US-PFIZER INC-2017231205

PATIENT
  Age: 64 Year
  Sex: Male

DRUGS (7)
  1. PHENYTOIN. [Concomitant]
     Active Substance: PHENYTOIN
     Indication: SUPPORTIVE CARE
     Dosage: 300-600 MG/DAY FROM DAY -9 TO -4
  2. GEMCITABINE HYDROCHLORIDE. [Suspect]
     Active Substance: GEMCITABINE HYDROCHLORIDE
     Dosage: 1800 MG/M2, (CONTINUOUS INFUSION, OVER 3 H AT 10 MG/M2 PER MIN) (HIGH DOSE)
     Route: 041
  3. GEMCITABINE HYDROCHLORIDE. [Suspect]
     Active Substance: GEMCITABINE HYDROCHLORIDE
     Indication: PLASMA CELL MYELOMA
     Dosage: 75 MG/M2, (ON DAYS -8 AND -3 AS A LOADING BOLUS)
     Route: 040
  4. MELPHALAN. [Suspect]
     Active Substance: MELPHALAN
     Indication: PLASMA CELL MYELOMA
     Dosage: 60 MG/M2 (PER DAY OVER 30 MIN ON DAYS -3 AND -2) (HIGH DOSE)
     Route: 042
  5. BUSULFAN. [Suspect]
     Active Substance: BUSULFAN
     Dosage: AUC OF 4000 UMOL/L PER MIN, ONCE PER DAY FROM DAYS -8 TO -5 OVER 3 H
     Route: 042
  6. DEXAMETHASONE. [Concomitant]
     Active Substance: DEXAMETHASONE
     Indication: SUPPORTIVE CARE
     Dosage: 8 MG, CYCLIC, TWICE PER DAY FROM DAY -9 TO -2
     Route: 042
  7. BUSULFAN. [Suspect]
     Active Substance: BUSULFAN
     Indication: PLASMA CELL MYELOMA
     Dosage: 32 MG/M2 (INTRAVENOUS TEST DOSE), (DURING 60 MIN IN THE PREADMISSION WEEK)
     Route: 042

REACTIONS (1)
  - Pneumonia respiratory syncytial viral [Fatal]
